FAERS Safety Report 16773076 (Version 2)
Quarter: 2019Q4

REPORT INFORMATION
  Report Type: Other
  Country: GB (occurrence: GB)
  Receive Date: 20190904
  Receipt Date: 20191208
  Transmission Date: 20200122
  Serious: Yes (Hospitalization)
  Sender: FDA-Public Use
  Company Number: PHHY2019GB204440

PATIENT

DRUGS (1)
  1. ENTRESTO [Suspect]
     Active Substance: SACUBITRIL\VALSARTAN
     Indication: PRODUCT USED FOR UNKNOWN INDICATION
     Dosage: UNK
     Route: 065

REACTIONS (4)
  - Cerebrovascular accident [Unknown]
  - Upper gastrointestinal haemorrhage [Unknown]
  - Blood creatinine decreased [Unknown]
  - Blood potassium increased [Unknown]
